FAERS Safety Report 18325301 (Version 1)
Quarter: 2020Q3

REPORT INFORMATION
  Report Type: Report from Study
  Country: US (occurrence: US)
  Receive Date: 20200929
  Receipt Date: 20200929
  Transmission Date: 20201103
  Serious: Yes (Other)
  Sender: FDA-Public Use
  Company Number: NVSC2020US261380

PATIENT
  Sex: Female

DRUGS (1)
  1. ENTRESTO [Suspect]
     Active Substance: SACUBITRIL\VALSARTAN
     Indication: CARDIAC FAILURE
     Dosage: 50 MG (24/26), BID
     Route: 048

REACTIONS (6)
  - Mitral valve incompetence [Unknown]
  - Atrial fibrillation [Unknown]
  - Asthenia [Unknown]
  - Ejection fraction decreased [Unknown]
  - Weight loss poor [Unknown]
  - Fatigue [Unknown]
